FAERS Safety Report 7677081 (Version 4)
Quarter: 2012Q4

REPORT INFORMATION
  Report Type: 
  Country: US (occurrence: US)
  Receive Date: 20101119
  Receipt Date: 20120828
  Transmission Date: 20130627
  Serious: Yes (Death, Life-Threatening, Hospitalization, Other)
  Sender: FDA-Public Use
  Company Number: US-AMGEN-USASP2010004483

PATIENT
  Age: 23 Year
  Sex: Female

DRUGS (5)
  1. ENBREL [Suspect]
     Indication: RHEUMATOID ARTHRITIS
     Dosage: 25 mg, 2 times/wk
     Dates: start: 2006
  2. ENBREL [Suspect]
     Dosage: 50 mg, qwk
     Dates: start: 2009
  3. ENBREL [Suspect]
     Dosage: 50 mg, qwk
     Route: 030
  4. PREDNISONE [Concomitant]
     Dosage: 10 mg, qd
     Route: 048
     Dates: start: 2003
  5. PREDNISONE [Concomitant]
     Dosage: 20 mg, qd
     Route: 048
     Dates: start: 2003

REACTIONS (3)
  - Progressive multifocal leukoencephalopathy [Fatal]
  - Cerebellar artery thrombosis [Not Recovered/Not Resolved]
  - Deep vein thrombosis [Not Recovered/Not Resolved]
